FAERS Safety Report 11809970 (Version 1)
Quarter: 2015Q4

REPORT INFORMATION
  Report Type: Report from Study
  Country: CA (occurrence: CA)
  Receive Date: 20151208
  Receipt Date: 20151208
  Transmission Date: 20160305
  Serious: No
  Sender: FDA-Public Use
  Company Number: PHHY2015CA118341

PATIENT
  Sex: Female

DRUGS (1)
  1. TASIGNA [Suspect]
     Active Substance: NILOTINIB
     Indication: CHRONIC MYELOID LEUKAEMIA
     Dosage: 300 MG, BID
     Route: 048
     Dates: start: 20150724

REACTIONS (9)
  - Gastrooesophageal reflux disease [Unknown]
  - Skin abrasion [Unknown]
  - Eating disorder [Unknown]
  - Decreased appetite [Unknown]
  - Skin irritation [Unknown]
  - Tremor [Unknown]
  - Nausea [Unknown]
  - Drug interaction [Unknown]
  - Weight decreased [Unknown]
